FAERS Safety Report 11171546 (Version 4)
Quarter: 2015Q3

REPORT INFORMATION
  Report Type: Spontaneous
  Country: DO (occurrence: DO)
  Receive Date: 20150608
  Receipt Date: 20150803
  Transmission Date: 20151125
  Serious: Yes (Hospitalization)
  Sender: FDA-Public Use
  Company Number: DO-GE HEALTHCARE MEDICAL DIAGNOSTICS-VISP-PR-1505S-0200

PATIENT
  Age: 40 Year
  Sex: Female
  Weight: 68.1 kg

DRUGS (4)
  1. VISIPAQUE [Suspect]
     Active Substance: IODIXANOL
     Indication: HAEMATURIA
  2. VISIPAQUE [Suspect]
     Active Substance: IODIXANOL
     Indication: DIAGNOSTIC PROCEDURE
  3. VISIPAQUE [Suspect]
     Active Substance: IODIXANOL
     Indication: ABDOMINAL PAIN LOWER
  4. VISIPAQUE [Suspect]
     Active Substance: IODIXANOL
     Indication: FLANK PAIN
     Dosage: DOSE NOT REPORTED
     Route: 042
     Dates: start: 20150415, end: 20150415

REACTIONS (12)
  - Nausea [Recovered/Resolved]
  - Liver disorder [Unknown]
  - Muscle spasms [Recovered/Resolved]
  - Pain [Not Recovered/Not Resolved]
  - Viral infection [Unknown]
  - Inflammation [Recovered/Resolved]
  - Feeling cold [Recovered/Resolved]
  - Platelet count decreased [Unknown]
  - Tremor [Recovered/Resolved]
  - Vomiting [Recovered/Resolved]
  - Malaise [Recovered/Resolved]
  - Dizziness [Recovered/Resolved]

NARRATIVE: CASE EVENT DATE: 2015
